FAERS Safety Report 4753570-8 (Version None)
Quarter: 2005Q3

REPORT INFORMATION
  Report Type: 
  Country: None (occurrence: None)
  Receive Date: 20050824
  Receipt Date: 20050812
  Transmission Date: 20060218
  Serious: Yes (Death, Hospitalization)
  Sender: FDA-Public Use
  Company Number: 2005022687

PATIENT
  Age: 67 Year
  Sex: Male
  Weight: 31.2982 kg

DRUGS (6)
  1. IRINOTECAN HCL [Suspect]
     Indication: GASTRIC CANCER
     Dosage: 80 MG/M2 (1 IN 1 WK), INTRAVENOUS
     Route: 042
     Dates: start: 20041213, end: 20050103
  2. FLUOROURACIL [Concomitant]
  3. LEUCOVORIN CALCIUM [Concomitant]
  4. SPIRONOLACTONE [Concomitant]
  5. METOCLOPRAMIDE [Concomitant]
  6. DURAGESIC-100 [Concomitant]

REACTIONS (5)
  - ACUTE PRERENAL FAILURE [None]
  - DEHYDRATION [None]
  - DIARRHOEA [None]
  - MULTI-ORGAN FAILURE [None]
  - SEPSIS [None]
